FAERS Safety Report 9514274 (Version 5)
Quarter: 2016Q1

REPORT INFORMATION
  Report Type: Report from Study
  Country: US (occurrence: US)
  Receive Date: 20130910
  Receipt Date: 20160112
  Transmission Date: 20160526
  Serious: Yes (Hospitalization, Other)
  Sender: FDA-Public Use
  Company Number: US-SANOFI-AVENTIS-2013SA089266

PATIENT
  Age: 37 Year
  Sex: Female

DRUGS (3)
  1. TYSABRI [Concomitant]
     Active Substance: NATALIZUMAB
  2. AUBAGIO [Suspect]
     Active Substance: TERIFLUNOMIDE
     Indication: MULTIPLE SCLEROSIS
     Route: 048
     Dates: start: 20130207, end: 20131115
  3. TECFIDERA [Concomitant]
     Active Substance: DIMETHYL FUMARATE

REACTIONS (16)
  - Pain [Not Recovered/Not Resolved]
  - Eye pain [Unknown]
  - Unevaluable event [Not Recovered/Not Resolved]
  - Hyperhidrosis [Not Recovered/Not Resolved]
  - Tonsillar hypertrophy [Not Recovered/Not Resolved]
  - Pharyngeal oedema [Not Recovered/Not Resolved]
  - Alopecia [Not Recovered/Not Resolved]
  - Chest pain [Unknown]
  - Multiple sclerosis relapse [Not Recovered/Not Resolved]
  - Malaise [Unknown]
  - Dizziness [Not Recovered/Not Resolved]
  - Myocardial infarction [Unknown]
  - Gait disturbance [Not Recovered/Not Resolved]
  - Nystagmus [Unknown]
  - Dysphagia [Unknown]
  - Vision blurred [Unknown]
